FAERS Safety Report 4694602-5 (Version None)
Quarter: 2005Q2

REPORT INFORMATION
  Report Type: 
  Country: None (occurrence: None)
  Receive Date: 20050617
  Receipt Date: 20050606
  Transmission Date: 20051028
  Serious: Yes (Hospitalization)
  Sender: FDA-Public Use
  Company Number: HQWYE879023MAY05

PATIENT
  Age: 65 Year
  Sex: Male

DRUGS (24)
  1. ZURCAL (PANTOPRAZOLE) [Suspect]
     Dosage: 40 MG 1X PER 1 DAY ORAL
     Route: 048
     Dates: start: 20050105, end: 20050128
  2. AVANDIA [Suspect]
     Indication: DIABETES MELLITUS NON-INSULIN-DEPENDENT
     Dosage: 4 MG - ^SOME TIME (S) SOME DF^ ORAL
     Route: 048
     Dates: end: 20050228
  3. CIPRINE (CIPROFLOXACIN,) [Suspect]
     Indication: ABDOMINAL INJURY
     Dosage: 500 MG 1X PER 1 DAY ORAL
     Route: 048
     Dates: start: 20050218, end: 20050226
  4. CIPRINE (CIPROFLOXACIN,) [Suspect]
     Indication: BACK INJURY
     Dosage: 500 MG 1X PER 1 DAY ORAL
     Route: 048
     Dates: start: 20050218, end: 20050226
  5. CIPRINE (CIPROFLOXACIN,) [Suspect]
     Indication: INJURY
     Dosage: 500 MG 1X PER 1 DAY ORAL
     Route: 048
     Dates: start: 20050218, end: 20050226
  6. CIPROFLOXACIN [Suspect]
     Indication: ABDOMINAL INJURY
     Dosage: 500 - ^1DF 1 TIME (S) PER DAY^ ORAL
     Route: 048
     Dates: start: 20050216, end: 20050217
  7. CIPROFLOXACIN [Suspect]
     Indication: BACK INJURY
     Dosage: 500 - ^1DF 1 TIME (S) PER DAY^ ORAL
     Route: 048
     Dates: start: 20050216, end: 20050217
  8. CIPROFLOXACIN [Suspect]
     Indication: INJURY
     Dosage: 500 - ^1DF 1 TIME (S) PER DAY^ ORAL
     Route: 048
     Dates: start: 20050216, end: 20050217
  9. ACETAMINOPHEN [Suspect]
     Dosage: 2 DOSAGE FORM 4X PER 1 DAY ORAL
     Route: 048
     Dates: start: 20050216, end: 20050228
  10. DIPIPERON (PIPAMPERONE,) [Suspect]
     Dosage: 0.5 DOSAGE FORM 1X PER 1 DAY ORAL
     Route: 048
     Dates: start: 20050221, end: 20050228
  11. FLAGYL [Suspect]
     Indication: ABDOMINAL INJURY
     Dosage: 500 MG 1X PER 1 DAY ORAL
     Route: 048
     Dates: start: 20050216, end: 20050226
  12. FLAGYL [Suspect]
     Indication: BACK INJURY
     Dosage: 500 MG 1X PER 1 DAY ORAL
     Route: 048
     Dates: start: 20050216, end: 20050226
  13. FLAGYL [Suspect]
     Indication: INJURY
     Dosage: 500 MG 1X PER 1 DAY ORAL
     Route: 048
     Dates: start: 20050216, end: 20050226
  14. FRAXIPARINE   (HEPARIN-FRACTION, CALCIUM SALT,) [Suspect]
     Dosage: 1 DOSAGE FORM 1X PER 1 DAY SC
     Route: 058
     Dates: end: 20050221
  15. LASIX [Suspect]
     Indication: ESSENTIAL HYPERTENSION
     Dosage: 20 MG 1X PER 1 DAY ORAL
     Route: 048
     Dates: end: 20050228
  16. PASPERTIN (METOCLOPRAMIDE HYDROCHLORIDE,) [Suspect]
     Dosage: 4 MG - 15 GTT - 3 TIMES PER DAY ORAL
     Route: 048
     Dates: start: 20050221, end: 20050228
  17. TRAMADOL HCL [Suspect]
     Dosage: 100 MG - 20 GTT 1 TIME PER DAY ORAL
     Route: 048
     Dates: start: 20050217, end: 20050223
  18. XYZAL(LEVOCETIRIZINE,) [Suspect]
     Dosage: 1 DOSAGE FORM 1X PER 1 DAY ORAL
     Route: 048
     Dates: start: 20050218, end: 20050228
  19. FENISTIL (DIMETINDENE MALEATE) [Concomitant]
  20. EUTHROX (LEVOTHYROXINE SODIUM) [Concomitant]
  21. MAGNESIOCARD (MAGNESIUM ASPARTATE HYDROCHLORIDE) [Concomitant]
  22. TOREM (TORASEMIDE) [Concomitant]
  23. NOCTAMID (LORMETAZEPAM) [Concomitant]
  24. GLUCOPHAGE [Concomitant]

REACTIONS (3)
  - C-REACTIVE PROTEIN INCREASED [None]
  - CHOLESTASIS [None]
  - LIVER DISORDER [None]
